FAERS Safety Report 8772971 (Version 1)
Quarter: 2012Q4

REPORT INFORMATION
  Report Type: 
  Country: US (occurrence: US)
  Receive Date: 20120907
  Receipt Date: 20120907
  Transmission Date: 20130627
  Serious: Yes (Other)
  Sender: FDA-Public Use
  Company Number: US-JNJFOC-20120814005

PATIENT

DRUGS (6)
  1. HALOPERIDOL [Suspect]
     Indication: PSYCHOTIC DISORDER
     Route: 048
  2. RISPERDAL M-TAB [Suspect]
     Indication: PSYCHOTIC DISORDER
     Route: 048
  3. PERPHENAZINE [Suspect]
     Indication: PSYCHOTIC DISORDER
     Route: 048
  4. FLUPHENAZINE [Suspect]
     Indication: PSYCHOTIC DISORDER
     Route: 048
  5. ZYPREXA ZYDIS [Suspect]
     Indication: PSYCHOTIC DISORDER
     Route: 065
  6. ANTICHOLINERGICS [Suspect]
     Indication: PRODUCT USED FOR UNKNOWN INDICATION
     Route: 065

REACTIONS (5)
  - Parkinsonism [Unknown]
  - Parkinsonism [Unknown]
  - Dystonia [Unknown]
  - Tardive dyskinesia [Unknown]
  - Akathisia [Unknown]
